FAERS Safety Report 17148205 (Version 4)
Quarter: 2020Q2

REPORT INFORMATION
  Report Type: Report from Study
  Country: US (occurrence: US)
  Receive Date: 20191212
  Receipt Date: 20200401
  Transmission Date: 20200713
  Serious: No
  Sender: FDA-Public Use
  Company Number: NVSC2019US027328

PATIENT
  Age: 56 Year
  Sex: Female

DRUGS (1)
  1. GILENYA [Suspect]
     Active Substance: FINGOLIMOD HYDROCHLORIDE
     Indication: RELAPSING-REMITTING MULTIPLE SCLEROSIS
     Dosage: 0.5 MG, QD
     Route: 048
     Dates: start: 20190619

REACTIONS (15)
  - Cough [Unknown]
  - White blood cell count decreased [Unknown]
  - Headache [Unknown]
  - Therapeutic response unexpected [Unknown]
  - Tooth abscess [Unknown]
  - Arthralgia [Unknown]
  - Sciatica [Unknown]
  - Blood pressure increased [Unknown]
  - Weight decreased [Unknown]
  - Fatigue [Unknown]
  - Urinary incontinence [Unknown]
  - Generalised anxiety disorder [Unknown]
  - Hypersensitivity [Unknown]
  - Influenza [Unknown]
  - Decreased immune responsiveness [Unknown]

NARRATIVE: CASE EVENT DATE: 20190715
